FAERS Safety Report 18642953 (Version 1)
Quarter: 2020Q4

REPORT INFORMATION
  Report Type: Spontaneous
  Country: US (occurrence: US)
  Receive Date: 20201220
  Receipt Date: 20201220
  Transmission Date: 20210114
  Serious: Yes (Life-Threatening)
  Sender: FDA-Public Use
  Company Number: None

PATIENT
  Age: 22 Year
  Sex: Male
  Weight: 101.25 kg

DRUGS (6)
  1. XCOPRI [Suspect]
     Active Substance: CENOBAMATE
     Indication: EPILEPSY
     Dosage: ?          QUANTITY:1 TABLET(S);?
     Route: 048
     Dates: start: 20201209, end: 20201211
  2. VNS [Concomitant]
  3. MEDICAL MARIJUANA [Concomitant]
     Active Substance: CANNABIS SATIVA SUBSP. INDICA TOP
  4. FYCOMPA [Concomitant]
     Active Substance: PERAMPANEL
  5. FELBAMATE. [Concomitant]
     Active Substance: FELBAMATE
  6. BANZEL [Concomitant]
     Active Substance: RUFINAMIDE

REACTIONS (2)
  - Intentional self-injury [None]
  - Psychotic disorder [None]

NARRATIVE: CASE EVENT DATE: 20201211
